FAERS Safety Report 15353284 (Version 1)
Quarter: 2018Q3

REPORT INFORMATION
  Report Type: Spontaneous
  Country: US (occurrence: US)
  Receive Date: 20180905
  Receipt Date: 20180905
  Transmission Date: 20181010
  Serious: No
  Sender: FDA-Public Use
  Company Number: US-B.I. PHARMACEUTICALS,INC./RIDGEFIELD-2018-BI-043430

PATIENT
  Age: 86 Year
  Sex: Female

DRUGS (12)
  1. FLUTICASONE. [Concomitant]
     Active Substance: FLUTICASONE
     Indication: ASTHMA
     Dosage: FORMULATION: INHALATION SOLUTION;
     Route: 055
     Dates: start: 2000
  2. VENTOLIN [Concomitant]
     Active Substance: ALBUTEROL SULFATE
     Indication: ASTHMA
     Dosage: FORM STRENGTH: 90MG; FORMULATION: INHALATION AEROSOL
     Route: 055
     Dates: start: 2000
  3. PRESERVISION [Concomitant]
     Active Substance: MINERALS\VITAMINS
     Indication: MACULAR DEGENERATION
     Dosage: FORMULATION: TABLET;
     Route: 050
     Dates: start: 2000
  4. OMEPRAZOLE. [Concomitant]
     Active Substance: OMEPRAZOLE
     Indication: GASTROINTESTINAL DISORDER
     Dosage: FORM STRENGTH: 40MG; FORMULATION: TABLET
     Route: 048
     Dates: start: 2000
  5. HYPO TEARS [Concomitant]
     Indication: DRY EYE
     Dosage: EYE DROPS AS NEEDED;
     Route: 050
     Dates: start: 2000
  6. SPIRIVA RESPIMAT [Suspect]
     Active Substance: TIOTROPIUM BROMIDE
     Indication: CHRONIC OBSTRUCTIVE PULMONARY DISEASE
     Dosage: FORMULATION: INHALATION SPRAY ADMINISTRATION CORRECT? YES ?ACTION(S) TAKEN : DOSE NOT CHANGED
     Route: 055
     Dates: start: 20180829
  7. CALCIUM PLUS VITAMIN D [Concomitant]
     Active Substance: CALCIUM\VITAMIN D
     Indication: OSTEOPOROSIS
     Dosage: FORM STRENGTH: 600MG; FORMULATION: TABLET
     Route: 048
     Dates: start: 2000
  8. RED YEAST RICE [Concomitant]
     Active Substance: DIETARY SUPPLEMENT
     Indication: BLOOD CHOLESTEROL
     Dosage: FORM STRENGTH: 1200MG; FORMULATION: TABLET
     Route: 048
     Dates: start: 2000
  9. LOSARTAN. [Concomitant]
     Active Substance: LOSARTAN
     Dosage: FORM STRENGTH: 50MG; FORMULATION: CAPSULE
     Route: 065
     Dates: start: 20180825
  10. WARFARIN [Concomitant]
     Active Substance: WARFARIN
     Indication: ATRIAL FIBRILLATION
     Dosage: FORM STRENGTH: 5MG; FORMULATION: TABLET
     Route: 048
     Dates: start: 2000
  11. LOSARTAN. [Concomitant]
     Active Substance: LOSARTAN
     Indication: HYPERTENSION
     Dosage: FORM STRENGTH: 25MG; FORMULATION: TABLET
     Route: 048
     Dates: start: 2008, end: 20180824
  12. FISH OIL [Concomitant]
     Active Substance: FISH OIL
     Indication: DRUG THERAPY
     Dosage: FORM STRENGTH: 1400MG; FORMULATION: TABLET
     Route: 048
     Dates: start: 2000

REACTIONS (2)
  - Cough [Recovered/Resolved]
  - Choking [Recovered/Resolved]

NARRATIVE: CASE EVENT DATE: 20180829
